FAERS Safety Report 8110355-2 (Version None)
Quarter: 2012Q1

REPORT INFORMATION
  Report Type: 
  Country: None (occurrence: None)
  Receive Date: 20120202
  Receipt Date: 20120124
  Transmission Date: 20120608
  Serious: Yes (Other)
  Sender: FDA-Public Use
  Company Number: NL-ASTRAZENECA-2012SE04740

PATIENT
  Age: 15 Year
  Sex: Female

DRUGS (1)
  1. CRESTOR [Suspect]
     Indication: HYPERCHOLESTEROLAEMIA
     Route: 048
     Dates: start: 20111214, end: 20120118

REACTIONS (4)
  - DYSPEPSIA [None]
  - VOMITING [None]
  - GAIT DISTURBANCE [None]
  - ABDOMINAL PAIN UPPER [None]
